FAERS Safety Report 10513492 (Version 1)
Quarter: 2014Q4

REPORT INFORMATION
  Report Type: Spontaneous
  Country: US (occurrence: US)
  Receive Date: 20141013
  Receipt Date: 20141013
  Transmission Date: 20150528
  Serious: No
  Sender: FDA-Public Use
  Company Number: US-009507513-1409USA007421

PATIENT
  Sex: Female

DRUGS (1)
  1. LOTRIMIN ULTRA [Suspect]
     Active Substance: BUTENAFINE HYDROCHLORIDE
     Indication: VULVOVAGINAL RASH
     Dosage: UNK, UNKNOWN
     Route: 061

REACTIONS (2)
  - Unevaluable event [Unknown]
  - Intentional product use issue [Unknown]
